FAERS Safety Report 9474079 (Version 2)
Quarter: 2013Q3

REPORT INFORMATION
  Report Type: Spontaneous
  Country: US (occurrence: US)
  Receive Date: 20130823
  Receipt Date: 20130924
  Transmission Date: 20140515
  Serious: Yes (Death, Hospitalization)
  Sender: FDA-Public Use
  Company Number: US-MPIJNJ-2013MPI000064

PATIENT
  Age: 41 Year
  Sex: Female

DRUGS (1)
  1. VELCADE [Suspect]
     Indication: PLASMA CELL MYELOMA
     Dosage: 2 MG, ON DAYS 1,4, 8 AND 11
     Route: 058

REACTIONS (2)
  - Transfusion [Unknown]
  - Death [Fatal]
